FAERS Safety Report 7442736-4 (Version None)
Quarter: 2011Q2

REPORT INFORMATION
  Report Type: 
  Country: None (occurrence: None)
  Receive Date: 20110428
  Receipt Date: 20110414
  Transmission Date: 20111010
  Serious: Yes (Other)
  Sender: FDA-Public Use
  Company Number: US-CELGENEUS-163-21880-11041918

PATIENT
  Sex: Male
  Weight: 74.456 kg

DRUGS (13)
  1. DEXAMETHASONE [Concomitant]
     Dosage: 20 MILLIGRAM
     Route: 065
     Dates: start: 20110406
  2. INSULIN [Concomitant]
     Route: 065
  3. GLIPIZIDE [Concomitant]
     Route: 065
  4. VITAMIN D [Concomitant]
     Route: 065
  5. AREDIA [Concomitant]
     Route: 065
  6. VELCADE [Concomitant]
     Indication: MULTIPLE MYELOMA
     Dosage: 1.3 MILLIGRAM/SQ. METER
     Route: 065
     Dates: start: 20110406
  7. FLAXSEED OIL [Concomitant]
     Route: 065
  8. REVLIMID [Suspect]
     Dosage: 10 MILLIGRAM
     Route: 048
     Dates: start: 20110413
  9. REVLIMID [Suspect]
     Indication: MULTIPLE MYELOMA
     Dosage: 25 MILLIGRAM
     Route: 048
     Dates: start: 20110405, end: 20110413
  10. SIMVASTATIN [Concomitant]
     Dosage: 10 MILLIGRAM
     Route: 065
  11. CO Q10 [Concomitant]
     Route: 065
  12. ACYCLOVIR [Concomitant]
     Dosage: 400 MILLIGRAM
     Route: 065
  13. OXYCODONE [Concomitant]
     Route: 065

REACTIONS (3)
  - BLOOD CREATININE INCREASED [None]
  - BLOOD GLUCOSE INCREASED [None]
  - BLOOD UREA INCREASED [None]
